FAERS Safety Report 22984778 (Version 5)
Quarter: 2024Q1

REPORT INFORMATION
  Report Type: Spontaneous
  Country: CA (occurrence: CA)
  Receive Date: 20230926
  Receipt Date: 20240228
  Transmission Date: 20240410
  Serious: Yes (Other)
  Sender: FDA-Public Use
  Company Number: CA-CELLTRION INC.-2023CA018521

PATIENT

DRUGS (8)
  1. INFLECTRA [Suspect]
     Active Substance: INFLIXIMAB-DYYB
     Indication: Crohn^s disease
     Dosage: UNK
     Route: 042
     Dates: start: 20230407
  2. INFLECTRA [Suspect]
     Active Substance: INFLIXIMAB-DYYB
     Dosage: UNK
     Route: 042
     Dates: start: 20230824
  3. INFLECTRA [Suspect]
     Active Substance: INFLIXIMAB-DYYB
     Dosage: 305MG (5MG/KG), EVERY 4 WEEKS
     Route: 042
     Dates: start: 20231113
  4. INFLECTRA [Suspect]
     Active Substance: INFLIXIMAB-DYYB
     Dosage: 305MG (5MG/KG), EVERY 4 WEEKS
     Route: 042
     Dates: start: 20231113
  5. INFLECTRA [Suspect]
     Active Substance: INFLIXIMAB-DYYB
     Dosage: 800 MG (11.11MG/KG), AFTER 6 WEEKS AND 2 DAYS (PRESCRIBED 5MG/KG, EVERY 4 WEEKS)
     Route: 042
     Dates: start: 20231227
  6. INFLECTRA [Suspect]
     Active Substance: INFLIXIMAB-DYYB
     Dosage: 325MG (5MG/KG), AFTER 7 WEEKS AND 6 DAYS (PRESCRIBED EVERY 4 WEEKS)
     Route: 042
     Dates: start: 20240220
  7. AZATHIOPRINE [Concomitant]
     Active Substance: AZATHIOPRINE
     Dosage: UNK , PUT ON STANDBY
     Dates: start: 20230407
  8. AZATHIOPRINE [Concomitant]
     Active Substance: AZATHIOPRINE
     Dosage: 1 DF
     Dates: start: 20230322

REACTIONS (6)
  - Fistula [Unknown]
  - Weight increased [Recovering/Resolving]
  - Abscess [Recovered/Resolved]
  - Off label use [Unknown]
  - Off label use [Unknown]
  - Inappropriate schedule of product administration [Unknown]

NARRATIVE: CASE EVENT DATE: 20230401
